FAERS Safety Report 25898544 (Version 2)
Quarter: 2025Q4

REPORT INFORMATION
  Report Type: Report from Study
  Country: CA (occurrence: CA)
  Receive Date: 20251009
  Receipt Date: 20251124
  Transmission Date: 20260117
  Serious: Yes (Other)
  Sender: ALEXION PHARMACEUTICALS
  Company Number: CA-AstraZeneca-CH-00964992A

PATIENT
  Sex: Male

DRUGS (4)
  1. BENRALIZUMAB [Suspect]
     Active Substance: BENRALIZUMAB
     Indication: Asthma
     Dosage: 30 MILLIGRAM
  2. BENRALIZUMAB [Suspect]
     Active Substance: BENRALIZUMAB
  3. SYMBICORT [Concomitant]
     Active Substance: BUDESONIDE\FORMOTEROL FUMARATE DIHYDRATE
     Route: 065
  4. VENTOLIN [Concomitant]
     Active Substance: ALBUTEROL SULFATE
     Route: 065

REACTIONS (10)
  - Hypothermia [Unknown]
  - Cold sweat [Unknown]
  - Insomnia [Unknown]
  - Hyperhidrosis [Unknown]
  - Abdominal pain upper [Unknown]
  - Headache [Unknown]
  - Pain [Unknown]
  - Tremor [Unknown]
  - Pain [Unknown]
  - Therapy change [Unknown]
